FAERS Safety Report 19277189 (Version 2)
Quarter: 2021Q2

REPORT INFORMATION
  Report Type: Spontaneous
  Country: US (occurrence: US)
  Receive Date: 20210519
  Receipt Date: 20210616
  Transmission Date: 20210717
  Serious: Yes (Hospitalization)
  Sender: FDA-Public Use
  Company Number: US-PRINSTON PHARMACEUTICAL INC.-2021PRN00169

PATIENT
  Age: 50 Year
  Sex: Female
  Weight: 98.1 kg

DRUGS (19)
  1. RISPERIDONE. [Suspect]
     Active Substance: RISPERIDONE
     Indication: RESTLESS LEGS SYNDROME
     Dosage: 3 MG, 1X/DAY AT BEDTIME
     Dates: start: 20210503, end: 202105
  2. BUSPIRONE [Concomitant]
     Active Substance: BUSPIRONE HYDROCHLORIDE
     Dosage: 60 MG, 2X/DAY
     Route: 048
  3. SUMATRIPTAN. [Concomitant]
     Active Substance: SUMATRIPTAN
     Dosage: 20 MG, 1X/DAY AS NEEDED
     Route: 045
  4. TOPIRAMATE. [Concomitant]
     Active Substance: TOPIRAMATE
     Dosage: 100 MG, 2X/DAY
     Route: 048
  5. ALBUTEROL HFA [Concomitant]
     Active Substance: ALBUTEROL SULFATE
     Dosage: 2 PUFFS EVERY 4 HOURS AS NEEDED
  6. ESZOPICLONE. [Concomitant]
     Active Substance: ESZOPICLONE
     Dosage: 3 MG, 1X/DAY AT BEDTIME
     Route: 048
  7. LATANOPROST. [Concomitant]
     Active Substance: LATANOPROST
     Dosage: 1 GTT, 1X/DAY IN BOTH EYES IN THE EVENING
     Route: 047
  8. METHYLPHENIDATE. [Concomitant]
     Active Substance: METHYLPHENIDATE
     Dosage: 20 MG, 3X/DAY
     Route: 048
  9. REXULTI [Concomitant]
     Active Substance: BREXPIPRAZOLE
     Dosage: 4 MG, 1X/DAY
     Route: 048
  10. ROPINIROLE. [Concomitant]
     Active Substance: ROPINIROLE
     Dosage: 0.5 MG, 1X/DAY
     Route: 048
  11. RISPERIDONE. [Suspect]
     Active Substance: RISPERIDONE
     Indication: RESTLESS LEGS SYNDROME
     Dosage: 0.5 MG, 1X/DAY AT BEDTIME
     Dates: start: 20210503, end: 202105
  12. HYDROXYZINE PAMOATE. [Concomitant]
     Active Substance: HYDROXYZINE PAMOATE
     Dosage: 50 MG, 1X/DAY
     Route: 048
  13. TOPIRAMATE. [Concomitant]
     Active Substance: TOPIRAMATE
     Dosage: 50 MG, 2X/DAY
     Route: 048
  14. RISPERIDONE. [Suspect]
     Active Substance: RISPERIDONE
     Dosage: 3 MG, 1X/DAY
     Route: 048
     Dates: start: 2021
  15. TERBINAFINE. [Concomitant]
     Active Substance: TERBINAFINE
     Dosage: 250 MG, 1X/DAY
     Route: 048
  16. EPINEPHRINE. [Concomitant]
     Active Substance: EPINEPHRINE
     Dosage: 0.1 MG, AS NEEDED
     Route: 030
  17. PROPRANOLOL [Concomitant]
     Active Substance: PROPRANOLOL HYDROCHLORIDE
     Dosage: 20 MG, 2X/DAY
     Route: 048
  18. RAMELTEON [Concomitant]
     Active Substance: RAMELTEON
     Dosage: 8 MG, 1X/DAY AT BEDTIME AS NEEDED
     Route: 048
  19. OMEPRAZOLE. [Concomitant]
     Active Substance: OMEPRAZOLE
     Dosage: 40 MG, 1X/DAY

REACTIONS (20)
  - Blood calcium decreased [Unknown]
  - Red cell distribution width increased [Unknown]
  - Total cholesterol/HDL ratio increased [Unknown]
  - Blood creatine increased [Unknown]
  - Dizziness [Not Recovered/Not Resolved]
  - Blood chloride increased [Unknown]
  - Mean cell haemoglobin decreased [Unknown]
  - Mean cell haemoglobin concentration decreased [Unknown]
  - Off label use [Not Recovered/Not Resolved]
  - Blood glucose increased [Unknown]
  - High density lipoprotein decreased [Unknown]
  - Bradycardia [Unknown]
  - Myocardial necrosis marker increased [Unknown]
  - Blood urea nitrogen/creatinine ratio decreased [Unknown]
  - Balance disorder [Not Recovered/Not Resolved]
  - Glomerular filtration rate decreased [Unknown]
  - Haematocrit decreased [Unknown]
  - Chest pain [Recovered/Resolved]
  - Product prescribing error [Recovered/Resolved]
  - Haemoglobin decreased [Unknown]

NARRATIVE: CASE EVENT DATE: 20210503
